FAERS Safety Report 12419611 (Version 2)
Quarter: 2016Q2

REPORT INFORMATION
  Report Type: Report from Study
  Country: GB (occurrence: GB)
  Receive Date: 20160531
  Receipt Date: 20160615
  Transmission Date: 20160815
  Serious: Yes (Hospitalization)
  Sender: FDA-Public Use
  Company Number: GB-IPSEN BIOPHARMACEUTICALS, INC.-2016-04712

PATIENT
  Sex: Male
  Weight: 115 kg

DRUGS (2)
  1. SOMATULINE AUTOGEL [Suspect]
     Active Substance: LANREOTIDE ACETATE
     Indication: ACROMEGALY
     Dosage: 120 MG
     Route: 030
     Dates: start: 2006
  2. SOMATULINE AUTOGEL [Suspect]
     Active Substance: LANREOTIDE ACETATE
     Dosage: 120 MG
     Route: 030

REACTIONS (6)
  - Inappropriate schedule of drug administration [Unknown]
  - Cholangitis [Recovering/Resolving]
  - Gallbladder pain [Unknown]
  - Bile duct stone [Recovering/Resolving]
  - Cholelithiasis [Recovering/Resolving]
  - Incorrect route of drug administration [Unknown]
